FAERS Safety Report 15106673 (Version 2)
Quarter: 2018Q3

REPORT INFORMATION
  Report Type: Spontaneous
  Country: US (occurrence: US)
  Receive Date: 20180704
  Receipt Date: 20180827
  Transmission Date: 20181010
  Serious: No
  Sender: FDA-Public Use
  Company Number: US-SA-2018SA172582

PATIENT
  Age: 48 Year
  Sex: Female
  Weight: 56.69 kg

DRUGS (1)
  1. AUBAGIO [Suspect]
     Active Substance: TERIFLUNOMIDE
     Indication: MULTIPLE SCLEROSIS
     Dosage: 14 MG, QD
     Route: 048
     Dates: start: 201805

REACTIONS (9)
  - Sensory disturbance [Unknown]
  - Paraesthesia [Unknown]
  - Sleep disorder [Unknown]
  - Malaise [Unknown]
  - Back pain [Unknown]
  - Fatigue [Unknown]
  - Depression [Unknown]
  - Abdominal discomfort [Unknown]
  - Diarrhoea [Unknown]

NARRATIVE: CASE EVENT DATE: 201805
